FAERS Safety Report 22286936 (Version 3)
Quarter: 2023Q4

REPORT INFORMATION
  Report Type: Spontaneous
  Country: FR (occurrence: FR)
  Receive Date: 20230505
  Receipt Date: 20231031
  Transmission Date: 20240110
  Serious: Yes (Life-Threatening, Hospitalization, Disabling, Other)
  Sender: FDA-Public Use
  Company Number: FR-RECORDATI-2023002180

PATIENT
  Age: 8 Year
  Sex: Male
  Weight: 31 kg

DRUGS (3)
  1. AMOXICILLIN [Suspect]
     Active Substance: AMOXICILLIN
     Indication: Tonsillitis
     Dosage: UNK
     Route: 065
     Dates: start: 20230410, end: 20230411
  2. BICLOTYMOL [Suspect]
     Active Substance: BICLOTYMOL
     Indication: Tonsillitis
     Dosage: 6 DOSAGE FORM, ONCE A DAY (2 DOSAGE FORM, TID)
     Route: 065
     Dates: start: 20230410, end: 20230411
  3. BICLOTYMOL [Suspect]
     Active Substance: BICLOTYMOL
     Dosage: 6 DOSAGE FORM, ONCE A DAY (2 DOSAGE FORM, TID)
     Route: 065
     Dates: start: 20230412, end: 20230414

REACTIONS (3)
  - Angioedema [Recovered/Resolved with Sequelae]
  - Pharyngeal paraesthesia [Recovering/Resolving]
  - Product label issue [Recovered/Resolved]

NARRATIVE: CASE EVENT DATE: 20230401
